FAERS Safety Report 11362238 (Version 1)
Quarter: 2015Q3

REPORT INFORMATION
  Report Type: Report from Study
  Country: US (occurrence: US)
  Receive Date: 20150810
  Receipt Date: 20150810
  Transmission Date: 20151125
  Serious: No
  Sender: FDA-Public Use
  Company Number: US-AMGEN-USASP2015078452

PATIENT
  Age: 54 Year
  Sex: Male

DRUGS (1)
  1. ENBREL [Suspect]
     Active Substance: ETANERCEPT
     Indication: RHEUMATOID ARTHRITIS
     Dosage: UNK UNK, QWK
     Route: 065
     Dates: start: 20150511

REACTIONS (4)
  - Joint stiffness [Not Recovered/Not Resolved]
  - Therapeutic response decreased [Recovering/Resolving]
  - Arthralgia [Not Recovered/Not Resolved]
  - Arthritis [Recovering/Resolving]

NARRATIVE: CASE EVENT DATE: 2015
